FAERS Safety Report 19608835 (Version 1)
Quarter: 2021Q3

REPORT INFORMATION
  Report Type: Spontaneous
  Country: US (occurrence: US)
  Receive Date: 20210721
  Receipt Date: 20210721
  Transmission Date: 20211014
  Serious: No
  Sender: FDA-Public Use
  Company Number: None

PATIENT

DRUGS (2)
  1. LEVETIRACETAM. [Suspect]
     Active Substance: LEVETIRACETAM
     Route: 048
  2. LEVOCARNITINE. [Suspect]
     Active Substance: LEVOCARNITINE
     Dosage: ?          OTHER STRENGTH:1/10 G/ML;?
     Route: 048

REACTIONS (1)
  - Wrong product administered [None]
